FAERS Safety Report 6151006-6 (Version None)
Quarter: 2009Q2

REPORT INFORMATION
  Report Type: 
  Country: None (occurrence: None)
  Receive Date: 20090410
  Receipt Date: 20090324
  Transmission Date: 20091009
  Serious: No
  Sender: FDA-Public Use
  Company Number: A0769416A

PATIENT
  Age: 50 Year
  Sex: Female
  Weight: 54.1 kg

DRUGS (2)
  1. TYKERB [Suspect]
     Indication: DRUG USE FOR UNKNOWN INDICATION
  2. XELODA [Suspect]

REACTIONS (6)
  - DIARRHOEA [None]
  - DRY SKIN [None]
  - FATIGUE [None]
  - NAUSEA [None]
  - RASH PRURITIC [None]
  - VOMITING [None]
